FAERS Safety Report 6733855-6 (Version None)
Quarter: 2010Q2

REPORT INFORMATION
  Report Type: 
  Country: None (occurrence: None)
  Receive Date: 20100520
  Receipt Date: 20100512
  Transmission Date: 20101027
  Serious: Yes (Death, Hospitalization)
  Sender: FDA-Public Use
  Company Number: JP-AMGEN-QUU406372

PATIENT
  Age: 73 Year
  Sex: Male

DRUGS (2)
  1. CINACALCET [Suspect]
     Indication: HYPERPARATHYROIDISM SECONDARY
     Route: 048
  2. RENAGEL [Suspect]
     Route: 048

REACTIONS (1)
  - INTESTINAL PERFORATION [None]
